FAERS Safety Report 7119972-X (Version None)
Quarter: 2010Q4

REPORT INFORMATION
  Report Type: 
  Country: None (occurrence: None)
  Receive Date: 20101123
  Receipt Date: 20101117
  Transmission Date: 20110411
  Serious: Yes (Other)
  Sender: FDA-Public Use
  Company Number: NL-JNJCH-2010026536

PATIENT
  Sex: Male

DRUGS (1)
  1. LISTERINE COOLMINT [Suspect]
     Indication: PRODUCT USED FOR UNKNOWN INDICATION
     Dosage: TEXT:UNKNOWN
     Route: 048
     Dates: start: 20100101, end: 20100101

REACTIONS (2)
  - INFLAMMATION [None]
  - RESPIRATORY TRACT INFECTION [None]
